FAERS Safety Report 19190044 (Version 3)
Quarter: 2021Q3

REPORT INFORMATION
  Report Type: Spontaneous
  Country: JP (occurrence: JP)
  Receive Date: 20210428
  Receipt Date: 20210702
  Transmission Date: 20211014
  Serious: Yes (Other)
  Sender: FDA-Public Use
  Company Number: JP-GLAXOSMITHKLINE-JP2021059085

PATIENT
  Age: 29 Year
  Sex: Female

DRUGS (3)
  1. ZEJULA [Suspect]
     Active Substance: NIRAPARIB
     Dosage: 200 MG (200 MILLIGRAM)
     Route: 048
  2. ZEJULA [Suspect]
     Active Substance: NIRAPARIB
     Indication: OVARIAN CANCER
     Dosage: 200 MG (200 MILLIGRAM)
     Route: 048
     Dates: start: 20210126, end: 20210208
  3. ZEJULA [Suspect]
     Active Substance: NIRAPARIB
     Dosage: 200 MG (200 MILLIGRAM)
     Route: 048
     Dates: end: 20210329

REACTIONS (3)
  - Platelet count decreased [Not Recovered/Not Resolved]
  - Malaise [Not Recovered/Not Resolved]
  - Neutrophil count decreased [Recovered/Resolved]

NARRATIVE: CASE EVENT DATE: 20210209
